FAERS Safety Report 5755902-0 (Version None)
Quarter: 2008Q2

REPORT INFORMATION
  Report Type: 
  Country: None (occurrence: None)
  Receive Date: 20080528
  Receipt Date: 20080514
  Transmission Date: 20081010
  Serious: Yes (Hospitalization)
  Sender: FDA-Public Use
  Company Number: DSA_31877_2008

PATIENT
  Age: 20 Year
  Sex: Male

DRUGS (4)
  1. LORAZEPAM [Suspect]
     Dosage: NOT THE PRESCRIBED AMOUNT ORAL
     Route: 048
     Dates: start: 20080513, end: 20080513
  2. AKINETON /00079502/ (AKINETON - BIPERIDEN HYDROCHLORIDE) (NOT SPECIFIE [Suspect]
     Dosage: NOT THE PRESCRIBED AMOUNT ORAL
     Route: 048
     Dates: start: 20080513, end: 20080513
  3. RISPERDAL [Suspect]
     Dosage: NOT THE PRESCRIBED AMOUNT ORAL
     Route: 048
     Dates: start: 20080513, end: 20080513
  4. TAXILAN /00162501/ (TAXILAN - PERIAZINE) (NOT SPECIFIED) [Suspect]
     Dosage: ORAL
     Route: 048
     Dates: start: 20080513, end: 20080513

REACTIONS (5)
  - COMA [None]
  - MULTIPLE DRUG OVERDOSE INTENTIONAL [None]
  - MUSCLE SPASMS [None]
  - MYDRIASIS [None]
  - SUICIDE ATTEMPT [None]
